FAERS Safety Report 19796697 (Version 1)
Quarter: 2021Q3

REPORT INFORMATION
  Report Type: Spontaneous
  Country: US (occurrence: US)
  Receive Date: 20210907
  Receipt Date: 20210907
  Transmission Date: 20211014
  Serious: No
  Sender: FDA-Public Use
  Company Number: US-MACLEODS PHARMACEUTICALS US LTD-MAC2021032588

PATIENT

DRUGS (1)
  1. IRBESARTAN 300 MG TABLETS [Suspect]
     Active Substance: IRBESARTAN
     Indication: PRODUCT USED FOR UNKNOWN INDICATION
     Dosage: UNK, BID; CUT THEM IN HALF AND TAKE 1/2 TABLET 2 TIMES A DAY
     Route: 065

REACTIONS (2)
  - Discomfort [Unknown]
  - Wrong technique in product usage process [Unknown]
